FAERS Safety Report 22380154 (Version 2)
Quarter: 2023Q2

REPORT INFORMATION
  Report Type: Spontaneous
  Country: US (occurrence: None)
  Receive Date: 20230529
  Receipt Date: 20230612
  Transmission Date: 20230721
  Serious: Yes (Death)
  Sender: FDA-Public Use
  Company Number: US-FARMAPROD-202211-2166

PATIENT
  Sex: Male

DRUGS (32)
  1. OXERVATE [Suspect]
     Active Substance: CENEGERMIN-BKBJ
     Indication: Neurotrophic keratopathy
     Route: 047
     Dates: start: 20221024, end: 20221219
  2. OXERVATE [Suspect]
     Active Substance: CENEGERMIN-BKBJ
     Indication: Ulcerative keratitis
     Route: 047
     Dates: start: 20230117, end: 20230313
  3. OXERVATE [Suspect]
     Active Substance: CENEGERMIN-BKBJ
     Route: 047
     Dates: start: 20230314
  4. ERYTHROMYCIN [Concomitant]
     Active Substance: ERYTHROMYCIN
  5. FINASTERIDE [Concomitant]
     Active Substance: FINASTERIDE
  6. MORPHINE SULFATE [Concomitant]
     Active Substance: MORPHINE SULFATE
     Dosage: 100 MILLIGRAMS / 5 MILLILITERS,
     Dates: start: 20220923
  7. ACETAMINOPHEN [Concomitant]
     Active Substance: ACETAMINOPHEN
     Dosage: RECTAL
  8. PROCHLORPERAZINE MALEATE [Concomitant]
     Active Substance: PROCHLORPERAZINE MALEATE
  9. HYOSCYAMINE SULFATE [Concomitant]
     Active Substance: HYOSCYAMINE SULFATE
  10. BISACODYL [Concomitant]
     Active Substance: BISACODYL
     Dosage: RECTAL
     Dates: start: 20220901
  11. LATANOPROST [Concomitant]
     Active Substance: LATANOPROST
  12. ATIVAN [Concomitant]
     Active Substance: LORAZEPAM
     Dosage: 0.5 MG SUBLINGUAL
     Dates: start: 20230511
  13. ULTRAM [Concomitant]
     Active Substance: TRAMADOL HYDROCHLORIDE
     Dates: start: 20220804
  14. SERTRALINE HYDROCHLORIDE [Concomitant]
     Active Substance: SERTRALINE HYDROCHLORIDE
  15. OXYBUTYNIN CHLORIDE [Concomitant]
     Active Substance: OXYBUTYNIN CHLORIDE
  16. OMEPRAZOLE [Concomitant]
     Active Substance: OMEPRAZOLE
     Dosage: DELAYED RELEASE
  17. METOPROLOL SUCCINATE [Concomitant]
     Active Substance: METOPROLOL SUCCINATE
  18. LOSARTAN POTASSIUM [Concomitant]
     Active Substance: LOSARTAN POTASSIUM
  19. SYNTHROID [Concomitant]
     Active Substance: LEVOTHYROXINE SODIUM
     Dates: start: 20220829
  20. HYDROXYCHLOROQUINE SULFATE [Concomitant]
     Active Substance: HYDROXYCHLOROQUINE SULFATE
  21. FUROSEMIDE [Concomitant]
     Active Substance: FUROSEMIDE
  22. TYLENOL [Concomitant]
     Active Substance: ACETAMINOPHEN
  23. ATORVASTATIN CALCIUM [Concomitant]
     Active Substance: ATORVASTATIN CALCIUM
  24. ASPIRIN [Concomitant]
     Active Substance: ASPIRIN
     Dates: start: 20220730
  25. COZAAR [Concomitant]
     Active Substance: LOSARTAN POTASSIUM
     Dates: start: 20220726
  26. MIRALAX [Concomitant]
     Active Substance: POLYETHYLENE GLYCOL 3350
     Dates: start: 20221124
  27. OXYGEN [Concomitant]
     Active Substance: OXYGEN
     Dates: start: 20230507
  28. XALATAN [Concomitant]
     Active Substance: LATANOPROST
     Dates: start: 20230408
  29. TYLENOL [Concomitant]
     Active Substance: ACETAMINOPHEN
     Dates: start: 20220724
  30. LEVSIN SL [Concomitant]
     Active Substance: HYOSCYAMINE SULFATE
     Dates: start: 20220901
  31. PLAQUENIL [Concomitant]
     Active Substance: HYDROXYCHLOROQUINE SULFATE
     Dates: start: 20220808
  32. LASIX [Concomitant]
     Active Substance: FUROSEMIDE
     Dates: start: 20220808

REACTIONS (5)
  - Death [Fatal]
  - Eye pain [Not Recovered/Not Resolved]
  - Eye irritation [Not Recovered/Not Resolved]
  - Lacrimation increased [Unknown]
  - Off label use [Unknown]
